FAERS Safety Report 11005894 (Version 1)
Quarter: 2015Q2

REPORT INFORMATION
  Report Type: Spontaneous
  Country: US (occurrence: US)
  Receive Date: 20150409
  Receipt Date: 20150409
  Transmission Date: 20150821
  Serious: No
  Sender: FDA-Public Use
  Company Number: US-ALLERGAN-1501019US

PATIENT
  Sex: Male
  Weight: 185 kg

DRUGS (3)
  1. NIFEDIPINE. [Concomitant]
     Active Substance: NIFEDIPINE
     Indication: HYPERTENSION
     Dosage: 60 MG, QD
  2. LUMIGAN [Suspect]
     Active Substance: BIMATOPROST
     Indication: GLAUCOMA
  3. LUMIGAN [Suspect]
     Active Substance: BIMATOPROST
     Indication: DRY EYE
     Dosage: UNK
     Route: 047
     Dates: start: 20150112

REACTIONS (3)
  - Inappropriate schedule of drug administration [Unknown]
  - Eye pruritus [Unknown]
  - Photopsia [Unknown]
